FAERS Safety Report 14875848 (Version 2)
Quarter: 2018Q4

REPORT INFORMATION
  Report Type: Spontaneous
  Country: US (occurrence: US)
  Receive Date: 20180510
  Receipt Date: 20181112
  Transmission Date: 20190204
  Serious: Yes (Disabling, Other)
  Sender: FDA-Public Use
  Company Number: US-DENTSPLY-2018SCDP000113

PATIENT

DRUGS (9)
  1. MEPIVACAINE HCL [Suspect]
     Active Substance: MEPIVACAINE\MEPIVACAINE HYDROCHLORIDE
     Indication: SPINAL ANAESTHESIA
     Dosage: 50 MG, 2 %
  2. LIDOCAINE HCL [Suspect]
     Active Substance: LIDOCAINE HYDROCHLORIDE
     Indication: LOCAL ANAESTHESIA
     Dosage: 1.5% LIDOCAINE
  3. EPINEPHRINE W/MEPIVACAINE [Suspect]
     Active Substance: EPINEPHRINE\MEPIVACAINE
     Indication: SPINAL ANAESTHESIA
     Dosage: UNK
  4. BUPIVACAINE AND ADRENALIN [Concomitant]
     Active Substance: BUPIVACAINE HYDROCHLORIDE\EPINEPHRINE
     Indication: LOCAL ANAESTHESIA
     Dosage: BUPIVACAINE 20 ML WITH EPINEPHRINE 5 MICROG/KG
  5. PREDNISONE. [Concomitant]
     Active Substance: PREDNISONE
     Indication: MYOPATHY
     Dosage: UNK
  6. 2% LIDOCAINE HCL INJECTION WITH EPINEPHRINE 1-100,000 [Suspect]
     Active Substance: EPINEPHRINE\LIDOCAINE HYDROCHLORIDE
     Indication: NERVE BLOCK
     Dosage: UNK
  7. KETOROLAC [Concomitant]
     Active Substance: KETOROLAC\KETOROLAC TROMETHAMINE
     Indication: LOCAL ANAESTHESIA
     Dosage: 30 MG, UNK
  8. MORPHINE [Concomitant]
     Active Substance: MORPHINE
     Indication: LOCAL ANAESTHESIA
     Dosage: 10 MG, UNK
  9. ROPIVACAINE. [Concomitant]
     Active Substance: ROPIVACAINE HYDROCHLORIDE
     Indication: PRODUCT USED FOR UNKNOWN INDICATION
     Dosage: 8 ML/H WAS INFUSED

REACTIONS (2)
  - Myositis [Recovering/Resolving]
  - Myopathy toxic [Recovering/Resolving]
